FAERS Safety Report 19761854 (Version 2)
Quarter: 2021Q4

REPORT INFORMATION
  Report Type: Spontaneous
  Country: RO (occurrence: RO)
  Receive Date: 20210830
  Receipt Date: 20211101
  Transmission Date: 20220303
  Serious: Yes (Other)
  Sender: FDA-Public Use
  Company Number: RO-NOVARTISPH-NVSC2021RO193724

PATIENT
  Age: 48 Year
  Sex: Male
  Weight: 75 kg

DRUGS (2)
  1. TAFINLAR [Suspect]
     Active Substance: DABRAFENIB MESYLATE
     Indication: Plasma cell myeloma
     Dosage: 75 MG X 4, QD
     Route: 048
     Dates: start: 20210607
  2. MEKINIST [Suspect]
     Active Substance: TRAMETINIB DIMETHYL SULFOXIDE
     Indication: Plasma cell myeloma
     Dosage: 2 MG X 4, QD
     Route: 048
     Dates: start: 20210607

REACTIONS (2)
  - Uveitis [Recovered/Resolved with Sequelae]
  - Product use in unapproved indication [Unknown]

NARRATIVE: CASE EVENT DATE: 20210607
